FAERS Safety Report 9792646 (Version 1)
Quarter: 2014Q1

REPORT INFORMATION
  Report Type: Spontaneous
  Country: US (occurrence: US)
  Receive Date: 20140102
  Receipt Date: 20140102
  Transmission Date: 20141002
  Serious: No
  Sender: FDA-Public Use
  Company Number: US-SANOFI-AVENTIS-2013SA005243

PATIENT
  Age: 59 Year
  Sex: Male

DRUGS (1)
  1. AUBAGIO [Suspect]
     Indication: MULTIPLE SCLEROSIS
     Route: 048
     Dates: start: 20130113

REACTIONS (6)
  - Fatigue [Unknown]
  - Back disorder [Unknown]
  - Stress [Unknown]
  - Headache [Recovered/Resolved]
  - Visual impairment [Unknown]
  - Drug dose omission [Unknown]
